FAERS Safety Report 4382342-1 (Version None)
Quarter: 2004Q2

REPORT INFORMATION
  Report Type: 
  Country: None (occurrence: None)
  Receive Date: 20040616
  Receipt Date: 20040611
  Transmission Date: 20050107
  Serious: Yes (Hospitalization)
  Sender: FDA-Public Use
  Company Number: TCI2004A01849

PATIENT
  Age: 49 Year
  Sex: Female

DRUGS (1)
  1. LANSAP 800 (LANSOPRAZOLE, CLARITHROMYCIN, AMOXICILLIN) (PREPARATION FO [Suspect]
     Indication: HELICOBACTER INFECTION
     Dosage: 1 CARD (0.5 CARD, 2 IN 1 D) PER ORAL
     Route: 048
     Dates: start: 20040213, end: 20040219

REACTIONS (5)
  - CONFUSIONAL STATE [None]
  - DELUSION [None]
  - DRUG ERUPTION [None]
  - MENTAL DISORDER [None]
  - STUPOR [None]
